FAERS Safety Report 8364718-0 (Version None)
Quarter: 2012Q2

REPORT INFORMATION
  Report Type: 
  Country: None (occurrence: None)
  Receive Date: 20120516
  Receipt Date: 20120510
  Transmission Date: 20120825
  Serious: Yes (Other)
  Sender: FDA-Public Use
  Company Number: US-AMGEN-USASP2012021296

PATIENT
  Sex: Female

DRUGS (3)
  1. ENBREL [Suspect]
     Indication: RHEUMATOID ARTHRITIS
     Dosage: 25 MG TWICE A WEEK AND THEN 50 MG EVERY OTHER WEEK.
     Route: 058
     Dates: start: 20000625
  2. VITAMIN D [Concomitant]
     Dosage: UNK IU/KG, UNK
  3. CALCITONIN SALMON [Concomitant]
     Indication: OSTEOPENIA
     Dosage: 1 PUFF, DAILY
     Route: 045
     Dates: start: 20020522

REACTIONS (2)
  - VITAMIN D DECREASED [None]
  - VULVAL CANCER RECURRENT [None]
